FAERS Safety Report 5051557-1 (Version None)
Quarter: 2006Q3

REPORT INFORMATION
  Report Type: 
  Country: None (occurrence: None)
  Receive Date: 20060711
  Receipt Date: 20060619
  Transmission Date: 20061208
  Serious: Yes (Hospitalization)
  Sender: FDA-Public Use
  Company Number: US200606005332

PATIENT
  Age: 92 Year
  Sex: Female
  Weight: 50.8 kg

DRUGS (8)
  1. FORTEO [Suspect]
     Indication: OSTEOPOROSIS
     Dosage: 20 UG, DAILY (1/D)
     Dates: start: 20060301
  2. FORTEO PEN                (FORTEO PEN) [Concomitant]
  3. DIGOXIN [Concomitant]
  4. HYDROCHLOROTHIAZIDE [Concomitant]
  5. CARDIZEM CD [Concomitant]
  6. SYNTHROID [Concomitant]
  7. DETROL - SLOW RELEASE                  (TOLTERODINE L-TARTRATE) [Concomitant]
  8. AMBIEN [Concomitant]

REACTIONS (8)
  - COMPRESSION FRACTURE [None]
  - FALL [None]
  - GAIT DISTURBANCE [None]
  - HAEMATOCRIT DECREASED [None]
  - HAEMOGLOBIN DECREASED [None]
  - HYPONATRAEMIA [None]
  - RIB FRACTURE [None]
  - TENDERNESS [None]
